FAERS Safety Report 23859696 (Version 2)
Quarter: 2024Q3

REPORT INFORMATION
  Report Type: Spontaneous
  Country: JP (occurrence: None)
  Receive Date: 20240515
  Receipt Date: 20240718
  Transmission Date: 20241017
  Serious: Yes (Hospitalization)
  Sender: ASTRAZENECA
  Company Number: 2024A051803

PATIENT
  Age: 52 Year
  Sex: Male
  Weight: 55 kg

DRUGS (11)
  1. DAPAGLIFLOZIN [Suspect]
     Active Substance: DAPAGLIFLOZIN
     Indication: Type 2 diabetes mellitus
     Route: 048
     Dates: start: 20231111
  2. TRICHLORMETHIAZIDE [Suspect]
     Active Substance: TRICHLORMETHIAZIDE
     Indication: Hypertension
     Route: 048
     Dates: end: 20240222
  3. AZOSEMIDE [Suspect]
     Active Substance: AZOSEMIDE
     Indication: Hypertension
     Route: 048
  4. AZILSARTAN KAMEDOXOMIL [Concomitant]
     Active Substance: AZILSARTAN KAMEDOXOMIL
     Indication: Hypertension
     Route: 048
  5. LINAGLIPTIN [Concomitant]
     Active Substance: LINAGLIPTIN
     Indication: Type 2 diabetes mellitus
     Route: 048
  6. LANSOPRAZOLE [Concomitant]
     Active Substance: LANSOPRAZOLE
     Indication: Gastrooesophageal reflux disease
     Route: 048
  7. SENNOSIDES [Concomitant]
     Active Substance: SENNOSIDES
     Indication: Constipation
     Route: 048
  8. FEBUXOSTAT [Concomitant]
     Active Substance: FEBUXOSTAT
     Indication: Hyperuricaemia
     Route: 048
  9. NIFEDIPINE [Concomitant]
     Active Substance: NIFEDIPINE
     Indication: Hypertension
     Route: 048
  10. SILODOSIN [Concomitant]
     Active Substance: SILODOSIN
     Indication: Neurogenic bladder
     Route: 048
     Dates: start: 20231110
  11. CALONAL [Concomitant]
     Active Substance: ACETAMINOPHEN
     Dosage: DOSE UNKNOWN
     Dates: start: 20231111

REACTIONS (5)
  - COVID-19 [Recovering/Resolving]
  - Hyponatraemia [Recovering/Resolving]
  - Urinary tract infection [Recovering/Resolving]
  - Renal impairment [Recovered/Resolved]
  - Skin necrosis [Unknown]

NARRATIVE: CASE EVENT DATE: 20231124
